FAERS Safety Report 8575373-9 (Version None)
Quarter: 2012Q3

REPORT INFORMATION
  Report Type: 
  Country: None (occurrence: None)
  Receive Date: 20120807
  Receipt Date: 20120801
  Transmission Date: 20120928
  Serious: No
  Sender: FDA-Public Use
  Company Number: US-PFIZER INC-2012188279

PATIENT
  Age: 48 Year
  Sex: Female
  Weight: 56.689 kg

DRUGS (1)
  1. LEVOXYL [Suspect]
     Indication: HYPOTHYROIDISM
     Dosage: 100 UG, UNK

REACTIONS (2)
  - URTICARIA [None]
  - THYROID FUNCTION TEST ABNORMAL [None]
